FAERS Safety Report 8232845-4 (Version None)
Quarter: 2012Q1

REPORT INFORMATION
  Report Type: 
  Country: None (occurrence: None)
  Receive Date: 20120323
  Receipt Date: 20120319
  Transmission Date: 20120608
  Serious: Yes (Life-Threatening, Hospitalization, Other)
  Sender: FDA-Public Use
  Company Number: US-ASTRAZENECA-2012SE06881

PATIENT
  Age: 72 Year
  Sex: Female

DRUGS (5)
  1. PRILOSEC [Suspect]
     Route: 048
  2. UNSPECIFIED CHEMOTHERAPY [Suspect]
     Route: 065
  3. NEXIUM [Suspect]
     Route: 048
  4. PRILOSEC OTC [Suspect]
     Route: 048
  5. PRILOSEC [Suspect]
     Dosage: OMEPRAZOLE GENERIC
     Route: 048

REACTIONS (12)
  - DYSPHONIA [None]
  - NEOPLASM [None]
  - COUGH [None]
  - ADVERSE EVENT [None]
  - URINARY INCONTINENCE [None]
  - DRUG INEFFECTIVE [None]
  - MULTI-ORGAN FAILURE [None]
  - COLON CANCER [None]
  - OFF LABEL USE [None]
  - DRUG DOSE OMISSION [None]
  - DRUG INTOLERANCE [None]
  - GASTROOESOPHAGEAL REFLUX DISEASE [None]
